FAERS Safety Report 5589519-8 (Version None)
Quarter: 2008Q1

REPORT INFORMATION
  Report Type: 
  Country: None (occurrence: None)
  Receive Date: 20080114
  Receipt Date: 20080102
  Transmission Date: 20080703
  Serious: Yes (Other)
  Sender: FDA-Public Use
  Company Number: US-AMGEN-US259005

PATIENT
  Sex: Female

DRUGS (4)
  1. ENBREL [Suspect]
     Indication: RHEUMATOID ARTHRITIS
     Route: 058
     Dates: start: 20071107
  2. METHOTREXATE [Concomitant]
     Route: 065
     Dates: start: 19890101, end: 20071210
  3. PLAQUENIL [Concomitant]
     Route: 065
     Dates: start: 19880101
  4. HEPARIN [Concomitant]

REACTIONS (2)
  - HEPATITIS CHRONIC ACTIVE [None]
  - INJECTION SITE HAEMORRHAGE [None]
